FAERS Safety Report 9350886 (Version 2)
Quarter: 2013Q3

REPORT INFORMATION
  Report Type: Spontaneous
  Country: JP (occurrence: JP)
  Receive Date: 20130617
  Receipt Date: 20130702
  Transmission Date: 20140515
  Serious: Yes (Other)
  Sender: FDA-Public Use
  Company Number: JP-UCBSA-088786

PATIENT
  Sex: Male

DRUGS (1)
  1. E KEPPRA [Suspect]
     Route: 048

REACTIONS (2)
  - Cerebral haemorrhage [Unknown]
  - Pyrexia [Unknown]
